FAERS Safety Report 6827770-7 (Version None)
Quarter: 2010Q3

REPORT INFORMATION
  Report Type: 
  Country: None (occurrence: None)
  Receive Date: 20100709
  Receipt Date: 20070127
  Transmission Date: 20110219
  Serious: No
  Sender: FDA-Public Use
  Company Number: US-PFIZER INC-2007008446

PATIENT
  Sex: Male
  Weight: 63.96 kg

DRUGS (3)
  1. CHANTIX [Suspect]
     Indication: SMOKING CESSATION THERAPY
     Route: 048
     Dates: start: 20070116
  2. THEOPHYLLINE [Concomitant]
     Indication: CHRONIC OBSTRUCTIVE PULMONARY DISEASE
  3. KLONOPIN [Concomitant]
     Indication: NERVOUSNESS
     Dates: end: 20070101

REACTIONS (2)
  - ABDOMINAL PAIN [None]
  - POOR QUALITY SLEEP [None]
